FAERS Safety Report 8987161 (Version 2)
Quarter: 2013Q1

REPORT INFORMATION
  Report Type: Spontaneous
  Country: US (occurrence: US)
  Receive Date: 20121227
  Receipt Date: 20130207
  Transmission Date: 20140127
  Serious: Yes (Hospitalization, Other)
  Sender: FDA-Public Use
  Company Number: US-BAYER-2012-135298

PATIENT
  Age: 30 Year
  Sex: Female

DRUGS (19)
  1. YAZ [Suspect]
     Indication: ACNE
  2. CLINDESSE [Concomitant]
  3. HYOSCYAMINE [Concomitant]
  4. TINDAMAX [Concomitant]
  5. METRONIDAZOLE [Concomitant]
  6. DEPAKOTE [Concomitant]
  7. SERTRALINE [Concomitant]
  8. LORAZEPAM [Concomitant]
  9. NYSTATIN W/TRIAMCINOLONE [NYSTATIN,TRIAMCINOLONE] [Concomitant]
  10. AZITHROMYCIN [Concomitant]
  11. GEODON [Concomitant]
  12. ANTIBIOTICS [Concomitant]
  13. DEPAKOTE ER [Concomitant]
  14. INDERAL [Concomitant]
  15. GLUCOSAMINE [GLUCOSAMINE] [Concomitant]
  16. METFORMIN [Concomitant]
  17. ALBUTEROL MDI [Concomitant]
  18. LEVSIN [Concomitant]
  19. ZYRTEC [CETIRIZINE HYDROCHLORIDE] [Concomitant]

REACTIONS (6)
  - Pulmonary embolism [Recovered/Resolved]
  - Deep vein thrombosis [None]
  - Cholecystectomy [None]
  - Injury [None]
  - Pain [None]
  - Pain [Recovered/Resolved]
